FAERS Safety Report 24199630 (Version 1)
Quarter: 2024Q3

REPORT INFORMATION
  Report Type: Other
  Country: IT (occurrence: IT)
  Receive Date: 20240812
  Receipt Date: 20240812
  Transmission Date: 20241016
  Serious: Yes (Hospitalization, Other)
  Sender: EMD SERONO INC
  Company Number: IT-Merck Healthcare KGaA-2024042213

PATIENT
  Age: 77 Year
  Sex: Male

DRUGS (2)
  1. METFORMIN HYDROCHLORIDE [Suspect]
     Active Substance: METFORMIN HYDROCHLORIDE
     Indication: Product used for unknown indication
  2. ERTUGLIFLOZIN;SITAGLIPTIN [Concomitant]
     Indication: Product used for unknown indication

REACTIONS (5)
  - Toxicity to various agents [Recovered/Resolved]
  - Acute kidney injury [Unknown]
  - Urinary tract infection [Unknown]
  - Dehydration [Unknown]
  - Lactic acidosis [Recovered/Resolved]
